FAERS Safety Report 5618379-1 (Version None)
Quarter: 2008Q1

REPORT INFORMATION
  Report Type: 
  Country: None (occurrence: None)
  Receive Date: 20080207
  Receipt Date: 20080206
  Transmission Date: 20080703
  Serious: Yes (Other)
  Sender: FDA-Public Use
  Company Number: A0708146A

PATIENT
  Sex: Female

DRUGS (1)
  1. NICORETTE [Suspect]
     Indication: SMOKER
     Dosage: 30GUM PER DAY
     Route: 002

REACTIONS (3)
  - DEPENDENCE [None]
  - INTENTIONAL DRUG MISUSE [None]
  - OVERDOSE [None]
